FAERS Safety Report 11391695 (Version 1)
Quarter: 2015Q3

REPORT INFORMATION
  Report Type: Spontaneous
  Country: US (occurrence: None)
  Receive Date: 20150814
  Receipt Date: 20150814
  Transmission Date: 20151125
  Serious: Yes (Hospitalization, Other)
  Sender: FDA-Public Use
  Company Number: ADR-2015-01537

PATIENT
  Age: 65 Year
  Sex: Male

DRUGS (1)
  1. BACLOFEN (ORAL) [Suspect]
     Active Substance: BACLOFEN
     Indication: PROCEDURAL PAIN

REACTIONS (7)
  - Unresponsive to stimuli [None]
  - Haemodialysis [None]
  - Somnolence [None]
  - Lethargy [None]
  - Hypotonia [None]
  - Fall [None]
  - Neurotoxicity [None]

NARRATIVE: CASE EVENT DATE: 20150101
